FAERS Safety Report 22344325 (Version 14)
Quarter: 2025Q2

REPORT INFORMATION
  Report Type: Spontaneous
  Country: CA (occurrence: CA)
  Receive Date: 20230519
  Receipt Date: 20250620
  Transmission Date: 20250717
  Serious: Yes (Other)
  Sender: PFIZER
  Company Number: CA-PFIZER INC-202300135734

PATIENT
  Age: 40 Year
  Sex: Female

DRUGS (6)
  1. XELJANZ [Suspect]
     Active Substance: TOFACITINIB CITRATE
     Indication: Colitis ulcerative
     Dosage: 10 MG, 2X/DAY (FOR 8 WEEKS)
     Route: 048
     Dates: start: 20230425, end: 2023
  2. XELJANZ [Suspect]
     Active Substance: TOFACITINIB CITRATE
     Dosage: 5 MG, 1X/DAY
     Route: 048
     Dates: start: 2023, end: 2024
  3. XELJANZ [Suspect]
     Active Substance: TOFACITINIB CITRATE
     Dosage: 10 MG, 2X/DAY
     Route: 048
     Dates: start: 2024
  4. XELJANZ [Suspect]
     Active Substance: TOFACITINIB CITRATE
     Dosage: 5 MG, 2X/DAY
     Route: 048
  5. XELJANZ [Suspect]
     Active Substance: TOFACITINIB CITRATE
     Dosage: 10 MG, 2X/DAY
     Route: 048
  6. POLYETHYLENE GLYCOL 3350 [Concomitant]
     Active Substance: POLYETHYLENE GLYCOL 3350

REACTIONS (10)
  - Lupus-like syndrome [Unknown]
  - Colitis [Recovered/Resolved]
  - Drug ineffective [Unknown]
  - Drug hypersensitivity [Unknown]
  - Weight increased [Unknown]
  - Acne [Recovered/Resolved]
  - Condition aggravated [Not Recovered/Not Resolved]
  - Hyperhidrosis [Unknown]
  - Arthropathy [Unknown]
  - Off label use [Unknown]

NARRATIVE: CASE EVENT DATE: 20230101
